FAERS Safety Report 4355612-0 (Version None)
Quarter: 2004Q2

REPORT INFORMATION
  Report Type: 
  Country: None (occurrence: None)
  Receive Date: 20040505
  Receipt Date: 20040429
  Transmission Date: 20050107
  Serious: Yes (Life-Threatening, Hospitalization)
  Sender: FDA-Public Use
  Company Number: 200403659

PATIENT
  Age: 23 Year
  Sex: Male

DRUGS (1)
  1. ACETAMINOPHEN [Suspect]
     Dates: start: 20040422, end: 20040422

REACTIONS (4)
  - HEPATIC FAILURE [None]
  - HEPATOCELLULAR DAMAGE [None]
  - OVERDOSE [None]
  - PROTEIN TOTAL DECREASED [None]
